FAERS Safety Report 24273935 (Version 1)
Quarter: 2024Q3

REPORT INFORMATION
  Report Type: Report from Study
  Country: US (occurrence: US)
  Receive Date: 20240902
  Receipt Date: 20240902
  Transmission Date: 20241016
  Serious: Yes (Other)
  Sender: ABBVIE
  Company Number: US-ABBVIE-5901149

PATIENT
  Age: 52 Year
  Sex: Female

DRUGS (1)
  1. HUMIRA [Suspect]
     Active Substance: ADALIMUMAB
     Indication: Product used for unknown indication
     Route: 058
     Dates: start: 201407

REACTIONS (4)
  - Anal fistula [Unknown]
  - Drug ineffective [Unknown]
  - Drug specific antibody present [Unknown]
  - Inflammation [Unknown]

NARRATIVE: CASE EVENT DATE: 20240801
